FAERS Safety Report 7764825-7 (Version None)
Quarter: 2011Q3

REPORT INFORMATION
  Report Type: 
  Country: None (occurrence: None)
  Receive Date: 20110921
  Receipt Date: 20110913
  Transmission Date: 20111222
  Serious: Yes (Other)
  Sender: FDA-Public Use
  Company Number: GB-JNJFOC-20110612560

PATIENT
  Sex: Female

DRUGS (2)
  1. CHILDREN'S BENADRYL ALLERGY [Suspect]
     Route: 065
  2. CHILDREN'S BENADRYL ALLERGY [Suspect]
     Indication: SEASONAL ALLERGY
     Route: 065
     Dates: start: 20110101

REACTIONS (1)
  - IDIOPATHIC THROMBOCYTOPENIC PURPURA [None]
